FAERS Safety Report 6775329-2 (Version None)
Quarter: 2010Q2

REPORT INFORMATION
  Report Type: 
  Country: None (occurrence: None)
  Receive Date: 20100615
  Receipt Date: 20100615
  Transmission Date: 20101027
  Serious: Yes (Life-Threatening, Other)
  Sender: FDA-Public Use
  Company Number: None

PATIENT
  Age: 42 Year
  Sex: Female
  Weight: 72.5755 kg

DRUGS (1)
  1. MEFLOQUINE HYDROCHLORIDE [Suspect]
     Indication: MALARIA
     Dosage: TAB 250 MG 1 TABLET WEEKLY
     Dates: start: 20091214, end: 20100120

REACTIONS (23)
  - ABNORMAL DREAMS [None]
  - ARTHRALGIA [None]
  - BALANCE DISORDER [None]
  - COLD SWEAT [None]
  - CONDITION AGGRAVATED [None]
  - CONFUSIONAL STATE [None]
  - COORDINATION ABNORMAL [None]
  - DEPRESSION [None]
  - DISORIENTATION [None]
  - DISTURBANCE IN ATTENTION [None]
  - DIZZINESS [None]
  - FATIGUE [None]
  - FEELING OF BODY TEMPERATURE CHANGE [None]
  - HEADACHE [None]
  - INSOMNIA [None]
  - MEMORY IMPAIRMENT [None]
  - MENSTRUAL DISORDER [None]
  - MOOD SWINGS [None]
  - MULTIPLE ALLERGIES [None]
  - MUSCLE SPASMS [None]
  - PANIC ATTACK [None]
  - PYREXIA [None]
  - VERTIGO [None]
